FAERS Safety Report 4983523-6 (Version None)
Quarter: 2006Q2

REPORT INFORMATION
  Report Type: 
  Country: None (occurrence: None)
  Receive Date: 20060406
  Receipt Date: 20060406
  Transmission Date: 20061013
  Serious: Yes (Hospitalization)
  Sender: FDA-Public Use
  Company Number: 2006049211

PATIENT
  Age: 53 Year
  Sex: Female

DRUGS (3)
  1. SUTENT [Suspect]
     Indication: METASTATIC RENAL CELL CARCINOMA
     Dosage: 50 MG (50 MG, FOUR WEEKS ON TWO WEEKS OFF), ORAL
     Route: 048
     Dates: start: 20060309, end: 20060405
  2. DURAGESIC-100 [Concomitant]
  3. MORPHINE [Concomitant]

REACTIONS (3)
  - DIARRHOEA [None]
  - DRUG TOXICITY [None]
  - POLLAKIURIA [None]
